FAERS Safety Report 8456139-7 (Version None)
Quarter: 2012Q2

REPORT INFORMATION
  Report Type: 
  Country: None (occurrence: None)
  Receive Date: 20120621
  Receipt Date: 20120619
  Transmission Date: 20120825
  Serious: Yes (Other)
  Sender: FDA-Public Use
  Company Number: PHHY2011JP47441

PATIENT
  Age: 18 Year
  Sex: Female

DRUGS (2)
  1. SANDIMMUNE [Suspect]
     Indication: GRAFT VERSUS HOST DISEASE
     Dosage: 3 MG/KG, UNK
     Route: 042
  2. METHOTREXATE [Concomitant]
     Indication: GRAFT VERSUS HOST DISEASE

REACTIONS (3)
  - POST TRANSPLANT DISTAL LIMB SYNDROME [None]
  - PAIN IN EXTREMITY [None]
  - PRURITUS [None]
